FAERS Safety Report 23870200 (Version 1)
Quarter: 2024Q2

REPORT INFORMATION
  Report Type: Spontaneous
  Country: CN (occurrence: CN)
  Receive Date: 20240517
  Receipt Date: 20240517
  Transmission Date: 20240716
  Serious: Yes (Hospitalization)
  Sender: FDA-Public Use
  Company Number: CN-BEIGENE-BGN-2024-007169

PATIENT

DRUGS (3)
  1. TISLELIZUMAB [Suspect]
     Active Substance: TISLELIZUMAB
     Indication: Hepatic cancer
     Dosage: 200 MILLIGRAM
     Route: 041
     Dates: start: 20240304
  2. EPIRUBICIN [Suspect]
     Active Substance: EPIRUBICIN
     Indication: Hepatic cancer
     Dosage: 60 MILLIGRAM, Q3WK
     Route: 041
     Dates: start: 20240305
  3. IFOSFAMIDE [Suspect]
     Active Substance: IFOSFAMIDE
     Indication: Hepatic cancer
     Dosage: 3 GRAM, Q3WK
     Route: 041
     Dates: start: 20240305

REACTIONS (1)
  - Myelosuppression [Recovering/Resolving]

NARRATIVE: CASE EVENT DATE: 20240317
